FAERS Safety Report 7034901-5 (Version None)
Quarter: 2010Q4

REPORT INFORMATION
  Report Type: 
  Country: None (occurrence: None)
  Receive Date: 20101008
  Receipt Date: 20100927
  Transmission Date: 20110411
  Serious: No
  Sender: FDA-Public Use
  Company Number: US-PFIZER INC-2010123398

PATIENT
  Sex: Female
  Weight: 61.224 kg

DRUGS (3)
  1. LYRICA [Suspect]
     Indication: SURGERY
     Dosage: 50 MG, 2X/DAY
     Route: 048
     Dates: start: 20100916
  2. MIRALAX [Concomitant]
     Dosage: UNK, 1X/DAY
     Route: 048
  3. ESTRADIOL [Concomitant]
     Indication: HYSTERECTOMY
     Dosage: 300 MG, 1X/DAY
     Route: 048

REACTIONS (1)
  - MUSCLE TWITCHING [None]
